FAERS Safety Report 5233974-X (Version None)
Quarter: 2007Q1

REPORT INFORMATION
  Report Type: 
  Country: None (occurrence: None)
  Receive Date: 20070208
  Receipt Date: 20070130
  Transmission Date: 20070707
  Serious: Yes (Other)
  Sender: FDA-Public Use
  Company Number: US-PFIZER INC-2006114736

PATIENT
  Sex: Female

DRUGS (2)
  1. CHANTIX [Suspect]
     Indication: SMOKING CESSATION THERAPY
     Dates: start: 20060911, end: 20060915
  2. SPIRIVA [Concomitant]
     Dates: start: 20060829, end: 20060829

REACTIONS (5)
  - COUGH [None]
  - DYSPNOEA [None]
  - NAUSEA [None]
  - RESPIRATORY DISORDER [None]
  - RHINORRHOEA [None]
